FAERS Safety Report 6614097-1 (Version None)
Quarter: 2010Q1

REPORT INFORMATION
  Report Type: 
  Country: None (occurrence: None)
  Receive Date: 20100304
  Receipt Date: 20100223
  Transmission Date: 20100710
  Serious: Yes (Other)
  Sender: FDA-Public Use
  Company Number: PHHY2010CA10742

PATIENT
  Sex: Female

DRUGS (2)
  1. DIOVAN [Suspect]
     Dosage: 80 MG
     Route: 048
  2. DIOVAN [Suspect]
     Dosage: 80 MG IN MORNING AND 40 MG AT NIGHT
     Route: 048

REACTIONS (3)
  - HYPOAESTHESIA FACIAL [None]
  - LIP SWELLING [None]
  - PARAESTHESIA [None]
